FAERS Safety Report 8548818-8 (Version None)
Quarter: 2012Q3

REPORT INFORMATION
  Report Type: 
  Country: None (occurrence: None)
  Receive Date: 20120730
  Receipt Date: 20120705
  Transmission Date: 20120928
  Serious: Yes (Other)
  Sender: FDA-Public Use
  Company Number: JP-BRISTOL-MYERS SQUIBB COMPANY-16789448

PATIENT
  Age: 41 Year
  Sex: Male

DRUGS (8)
  1. REBETOL [Suspect]
     Dosage: CAPSULE
     Route: 048
  2. FAMOTIDINE [Concomitant]
     Dosage: TABLET
  3. TRUVADA [Suspect]
     Indication: HIV INFECTION
     Dosage: DIVIDED DOSE FREQUENCY U 1DF: 1TAB
     Route: 048
     Dates: start: 20060830
  4. ADVATE [Concomitant]
  5. ISENTRESS [Concomitant]
     Dosage: DOSAGE STRENGTH: 400MG, TABLETS
     Dates: start: 20100712
  6. EFAVIRENZ [Suspect]
     Indication: HIV INFECTION
     Dosage: DIVIDED DOSE FREQUENCY U
     Route: 048
     Dates: start: 20000901, end: 20100711
  7. PEGINTERFERON ALFA-2B [Suspect]
     Dosage: POWDER FOR INJECTION
     Route: 058
  8. ENALAPRIL MALEATE [Concomitant]
     Dosage: TABLET

REACTIONS (3)
  - DIABETES MELLITUS [None]
  - PANCYTOPENIA [None]
  - HEPATITIS C [None]
